FAERS Safety Report 10915710 (Version 1)
Quarter: 2015Q1

REPORT INFORMATION
  Report Type: Spontaneous
  Country: US (occurrence: US)
  Receive Date: 20150316
  Receipt Date: 20150316
  Transmission Date: 20150721
  Serious: No
  Sender: FDA-Public Use
  Company Number: US-009507513-1503USA004013

PATIENT
  Sex: Female

DRUGS (1)
  1. REMERON [Suspect]
     Active Substance: MIRTAZAPINE
     Dosage: STRENGTH REPORTED AS 15 (UNITS NOT PROVIDED)

REACTIONS (2)
  - Feeling abnormal [Unknown]
  - Somnolence [Unknown]
